FAERS Safety Report 8167978-4 (Version None)
Quarter: 2012Q1

REPORT INFORMATION
  Report Type: 
  Country: None (occurrence: None)
  Receive Date: 20120227
  Receipt Date: 20120217
  Transmission Date: 20120608
  Serious: Yes (Death, Hospitalization)
  Sender: FDA-Public Use
  Company Number: FR-GLAXOSMITHKLINE-B0782329A

PATIENT
  Age: 76 Year
  Sex: Female

DRUGS (1)
  1. ARIXTRA [Suspect]
     Indication: DEEP VEIN THROMBOSIS
     Dosage: 1UNIT PER DAY
     Route: 058
     Dates: start: 20091231, end: 20100102

REACTIONS (1)
  - SUBDURAL HAEMATOMA [None]
